FAERS Safety Report 7487966-0 (Version None)
Quarter: 2011Q2

REPORT INFORMATION
  Report Type: 
  Country: None (occurrence: None)
  Receive Date: 20110511
  Receipt Date: 20110426
  Transmission Date: 20111010
  Serious: Yes (Hospitalization)
  Sender: FDA-Public Use
  Company Number: GER/ITL/11/0018170

PATIENT
  Age: 75 Year
  Sex: Male

DRUGS (5)
  1. CIMETIDINE [Suspect]
     Indication: GASTRODUODENAL ULCER
  2. DONEPEZIL HCL [Concomitant]
  3. QUETIAPINE FUMARATE [Concomitant]
  4. TICLOPIDINE HYDROCHLORIDE [Concomitant]
  5. CITALOPRAM HYDROBROMIDE [Suspect]
     Indication: DEPRESSION
     Dosage: 20 MG

REACTIONS (9)
  - GASTRIC ULCER HAEMORRHAGE [None]
  - CEREBRAL ATROPHY [None]
  - DUODENAL ULCER HAEMORRHAGE [None]
  - ELECTROENCEPHALOGRAM ABNORMAL [None]
  - HYPERTENSION [None]
  - HYPERHIDROSIS [None]
  - RESTLESSNESS [None]
  - BLOOD GLUCOSE INCREASED [None]
  - SEROTONIN SYNDROME [None]
